FAERS Safety Report 14378506 (Version 1)
Quarter: 2018Q1

REPORT INFORMATION
  Report Type: Spontaneous
  Country: FR (occurrence: FR)
  Receive Date: 20180112
  Receipt Date: 20180112
  Transmission Date: 20180509
  Serious: Yes (Hospitalization)
  Sender: FDA-Public Use
  Company Number: FR-MERCK KGAA-2039983

PATIENT
  Age: 55 Year
  Sex: Female

DRUGS (10)
  1. NOVOTHYROX [Suspect]
     Active Substance: LEVOTHYROXINE SODIUM
     Indication: PRODUCT USED FOR UNKNOWN INDICATION
  2. LEVOTHYROX [Suspect]
     Active Substance: LEVOTHYROXINE
     Dates: start: 1997
  3. IMOVANE [Concomitant]
     Active Substance: ZOPICLONE
     Dates: start: 20170919
  4. NOVOTHYROX [Suspect]
     Active Substance: LEVOTHYROXINE SODIUM
     Dates: start: 20170919
  5. BEPANTHENE [Concomitant]
     Active Substance: DEXPANTHENOL
  6. LEVOTHYROX [Suspect]
     Active Substance: LEVOTHYROXINE
     Dates: start: 20170919
  7. LEVOTHYROX [Suspect]
     Active Substance: LEVOTHYROXINE
     Dates: start: 20170929
  8. METFORMINE [Concomitant]
     Active Substance: METFORMIN HYDROCHLORIDE
     Dates: start: 20170624
  9. DOLIPRANE [Concomitant]
     Active Substance: ACETAMINOPHEN
  10. METFORMINE [Concomitant]
     Active Substance: METFORMIN HYDROCHLORIDE
     Dates: start: 20170107

REACTIONS (5)
  - Headache [None]
  - Decreased appetite [None]
  - Insomnia [None]
  - Blood thyroid stimulating hormone decreased [None]
  - Fatigue [None]

NARRATIVE: CASE EVENT DATE: 201703
